FAERS Safety Report 7999301-X (Version None)
Quarter: 2011Q4

REPORT INFORMATION
  Report Type: 
  Country: None (occurrence: None)
  Receive Date: 20111221
  Receipt Date: 20111215
  Transmission Date: 20120403
  Serious: Yes (Hospitalization, Disabling)
  Sender: FDA-Public Use
  Company Number: PHHY2011GB109255

PATIENT
  Age: 83 Year
  Sex: Female

DRUGS (7)
  1. ACYCLOVIR [Concomitant]
     Indication: PROPHYLAXIS
     Dosage: 400 MG, BID
     Route: 048
  2. TRANEXAMIC ACID [Concomitant]
     Dosage: 500 MG, TID
     Route: 048
  3. DIPYRIDAMOLE [Concomitant]
     Dosage: 200 MG, BID
     Route: 048
  4. SIMVASTATIN [Interacting]
     Indication: PANCYTOPENIA
     Dosage: 20 MG, QD
     Route: 048
     Dates: end: 20111027
  5. SERETIDE ^ALLEN + HANBURYS LTD^ [Concomitant]
  6. ITRACONAZOLE [Suspect]
     Dosage: 200 MG, BID
     Route: 048
     Dates: start: 20111004, end: 20111030
  7. MEROPENEM [Concomitant]
     Indication: SEPSIS
     Dosage: 1 G, TID
     Route: 042

REACTIONS (2)
  - DRUG INTERACTION [None]
  - MYOPATHY [None]
